FAERS Safety Report 8018305-4 (Version None)
Quarter: 2012Q1

REPORT INFORMATION
  Report Type: 
  Country: None (occurrence: None)
  Receive Date: 20120103
  Receipt Date: 20111220
  Transmission Date: 20120608
  Serious: Yes (Disabling)
  Sender: FDA-Public Use
  Company Number: CA-SANOFI-AVENTIS-2011SA084063

PATIENT
  Age: 60 Year
  Sex: Male

DRUGS (10)
  1. AVAPRO [Concomitant]
  2. CELEBREX [Concomitant]
  3. TRAZODONE HCL [Concomitant]
  4. NOVORAPID [Concomitant]
  5. ROSUVASTATIN [Suspect]
     Route: 065
  6. CITALOPRAM [Concomitant]
  7. METFORMIN HCL [Concomitant]
  8. FLUTICASONE FUROATE [Concomitant]
     Route: 045
  9. PRAMIPEXOLE DIHYDROCHLORIDE [Concomitant]
  10. LANTUS [Suspect]
     Indication: TYPE 2 DIABETES MELLITUS
     Dosage: DOSE:70 UNIT(S)
     Route: 058
     Dates: start: 20110831

REACTIONS (3)
  - MUSCULAR WEAKNESS [None]
  - PAIN [None]
  - RESTLESS LEGS SYNDROME [None]
